FAERS Safety Report 8133489-5 (Version None)
Quarter: 2012Q1

REPORT INFORMATION
  Report Type: 
  Country: None (occurrence: None)
  Receive Date: 20120213
  Receipt Date: 20120201
  Transmission Date: 20120608
  Serious: Yes (Death, Hospitalization)
  Sender: FDA-Public Use
  Company Number: MX-UCBSA-050588

PATIENT
  Age: 84 Year
  Sex: Male
  Weight: 78 kg

DRUGS (3)
  1. NUBRENZA [Suspect]
     Indication: PARKINSON'S DISEASE
     Route: 062
     Dates: start: 20110506, end: 20110510
  2. MADOPAR [Concomitant]
     Indication: PARKINSON'S DISEASE
     Route: 048
  3. MIDAZOLAM HCL [Concomitant]
     Indication: INSOMNIA
     Route: 048

REACTIONS (2)
  - RESPIRATORY ARREST [None]
  - PNEUMONIA [None]
